FAERS Safety Report 4611877-9 (Version None)
Quarter: 2005Q2

REPORT INFORMATION
  Report Type: 
  Country: None (occurrence: None)
  Receive Date: 20050308
  Receipt Date: 20050121
  Transmission Date: 20051028
  Serious: Yes (Other)
  Sender: FDA-Public Use
  Company Number: 2005UW01148

PATIENT
  Age: 68 Year
  Sex: Male
  Weight: 90.718 kg

DRUGS (9)
  1. CRESTOR [Suspect]
     Indication: BLOOD CHOLESTEROL INCREASED
     Dosage: 10 MG PO
     Route: 048
  2. TRICOR [Suspect]
  3. TRICOR [Suspect]
  4. DOXAZOSIN [Concomitant]
  5. BENICAR [Concomitant]
  6. CLARINEX [Concomitant]
  7. PREVACID [Concomitant]
  8. VITAMIN E [Concomitant]
  9. LIPITOR [Concomitant]

REACTIONS (4)
  - BLOOD TRIGLYCERIDES INCREASED [None]
  - FATIGUE [None]
  - MEMORY IMPAIRMENT [None]
  - PAIN [None]
